FAERS Safety Report 7762702-9 (Version None)
Quarter: 2011Q3

REPORT INFORMATION
  Report Type: 
  Country: None (occurrence: None)
  Receive Date: 20110920
  Receipt Date: 20110914
  Transmission Date: 20111222
  Serious: Yes (Hospitalization)
  Sender: FDA-Public Use
  Company Number: FR-PFIZER INC-2011216545

PATIENT
  Age: 91 Year
  Sex: Female

DRUGS (9)
  1. REPAGLINIDE [Concomitant]
     Dosage: 2 MG DAILY
  2. PREVISCAN [Concomitant]
  3. RAMIPRIL [Suspect]
     Indication: HYPERTENSION
     Dosage: 10 MG, 1X/DAY
     Route: 048
     Dates: end: 20110803
  4. ALDACTONE [Suspect]
     Indication: HYPERTENSION
     Dosage: 25 MG, 1X/DAY
     Route: 048
     Dates: end: 20110803
  5. BUMETANIDE [Suspect]
     Indication: HYPERTENSION
     Dosage: 5 MG, 1X/DAY
     Route: 048
     Dates: end: 20110803
  6. GLICLAZIDE [Suspect]
     Indication: DIABETES MELLITUS
     Dosage: 120 MG, 1X/DAY
     Route: 048
     Dates: end: 20110803
  7. ALLOPURINOL [Concomitant]
     Dosage: 200 MG DAILY
  8. LEVOTHYROXINE [Concomitant]
     Dosage: 150 UG, UNK
  9. PANTOPRAZOLE [Concomitant]
     Dosage: 40 MG DAILY

REACTIONS (5)
  - HYPONATRAEMIA [None]
  - FALL [None]
  - SKELETAL INJURY [None]
  - DISORIENTATION [None]
  - LACERATION [None]
